FAERS Safety Report 7232879-2 (Version None)
Quarter: 2011Q1

REPORT INFORMATION
  Report Type: 
  Country: None (occurrence: None)
  Receive Date: 20110119
  Receipt Date: 20110113
  Transmission Date: 20110831
  Serious: Yes (Other)
  Sender: FDA-Public Use
  Company Number: GB-PFIZER INC-2011008718

PATIENT
  Sex: Male

DRUGS (1)
  1. SALAZOPYRIN [Suspect]
     Dosage: 3 TABLETS IN MORNING AND 3 IN AFTERNOON
     Dates: start: 20101126

REACTIONS (1)
  - ARTHRITIS [None]
